FAERS Safety Report 7986347-0 (Version None)
Quarter: 2011Q4

REPORT INFORMATION
  Report Type: 
  Country: None (occurrence: None)
  Receive Date: 20111216
  Receipt Date: 20101020
  Transmission Date: 20120403
  Serious: No
  Sender: FDA-Public Use
  Company Number: US-GLAXOSMITHKLINE-A0887866A

PATIENT
  Age: 71 Year
  Sex: Male

DRUGS (5)
  1. NIACIN [Concomitant]
     Indication: BLOOD CHOLESTEROL
  2. COREG CR [Suspect]
     Indication: ATRIAL FIBRILLATION
     Dosage: 80MG PER DAY
     Route: 048
     Dates: start: 20100801
  3. COUMADIN [Concomitant]
  4. LISINOPRIL [Concomitant]
  5. LOVAZA [Concomitant]
     Indication: HYPERCHOLESTEROLAEMIA

REACTIONS (2)
  - HYPERTENSION [None]
  - FATIGUE [None]
